FAERS Safety Report 17472979 (Version 5)
Quarter: 2020Q3

REPORT INFORMATION
  Report Type: Spontaneous
  Country: PT (occurrence: PT)
  Receive Date: 20200228
  Receipt Date: 20200709
  Transmission Date: 20201102
  Serious: Yes (Hospitalization)
  Sender: FDA-Public Use
  Company Number: NVSC2020PT055740

PATIENT
  Age: 80 Year
  Sex: Male

DRUGS (1)
  1. METFORMIN [Suspect]
     Active Substance: METFORMIN HYDROCHLORIDE
     Indication: TYPE 2 DIABETES MELLITUS
     Dosage: UNK
     Route: 048

REACTIONS (2)
  - Drug eruption [Recovering/Resolving]
  - Pemphigoid [Recovering/Resolving]
